FAERS Safety Report 7072083-4 (Version None)
Quarter: 2010Q4

REPORT INFORMATION
  Report Type: 
  Country: None (occurrence: None)
  Receive Date: 20101029
  Receipt Date: 20100104
  Transmission Date: 20110411
  Serious: No
  Sender: FDA-Public Use
  Company Number: A0832280A

PATIENT
  Age: 83 Year
  Sex: Female
  Weight: 50.9 kg

DRUGS (4)
  1. ADVAIR DISKUS 100/50 [Suspect]
     Indication: LUNG DISORDER
     Dosage: 1PUFF TWICE PER DAY
     Route: 055
     Dates: start: 20091110, end: 20091122
  2. NYSTATIN [Concomitant]
  3. ZEGERID [Concomitant]
  4. CALCIUM [Concomitant]

REACTIONS (5)
  - ABDOMINAL DISCOMFORT [None]
  - CHAPPED LIPS [None]
  - GLOSSODYNIA [None]
  - LETHARGY [None]
  - ORAL FUNGAL INFECTION [None]
